FAERS Safety Report 18855964 (Version 2)
Quarter: 2021Q1

REPORT INFORMATION
  Report Type: Spontaneous
  Country: US (occurrence: US)
  Receive Date: 20210206
  Receipt Date: 20210213
  Transmission Date: 20210420
  Serious: No
  Sender: FDA-Public Use
  Company Number: US-009507513-2102USA001715

PATIENT
  Age: 28 Year
  Sex: Female
  Weight: 85.26 kg

DRUGS (1)
  1. NEXPLANON [Suspect]
     Active Substance: ETONOGESTREL
     Indication: CONTRACEPTION
     Dosage: 1 ROD (68 MG) ONCE, IN RIGHT ARM
     Route: 059
     Dates: start: 20200326, end: 20210121

REACTIONS (3)
  - Device breakage [Recovered/Resolved]
  - Device kink [Recovered/Resolved]
  - Menstruation irregular [Unknown]

NARRATIVE: CASE EVENT DATE: 20210113
